FAERS Safety Report 17470350 (Version 5)
Quarter: 2021Q1

REPORT INFORMATION
  Report Type: Report from Study
  Country: US (occurrence: US)
  Receive Date: 20200228
  Receipt Date: 20210305
  Transmission Date: 20210419
  Serious: Yes (Congenital Anomaly, Other)
  Sender: FDA-Public Use
  Company Number: US-SUN PHARMACEUTICAL INDUSTRIES LTD-2020R1-237933

PATIENT
  Sex: Female
  Weight: 8.16 kg

DRUGS (1)
  1. ABSORICA [Suspect]
     Active Substance: ISOTRETINOIN
     Indication: PRODUCT USED FOR UNKNOWN INDICATION
     Dosage: UNK
     Route: 064

REACTIONS (7)
  - Growth retardation [Not Recovered/Not Resolved]
  - Laryngeal cleft [Unknown]
  - Weight gain poor [Not Recovered/Not Resolved]
  - Gastrooesophageal reflux disease [Unknown]
  - Vomiting [Unknown]
  - Foetal exposure during pregnancy [Unknown]
  - Premature baby [Unknown]
